FAERS Safety Report 7201286-0 (Version None)
Quarter: 2010Q4

REPORT INFORMATION
  Report Type: 
  Country: None (occurrence: None)
  Receive Date: 20101227
  Receipt Date: 20101227
  Transmission Date: 20110411
  Serious: Yes (Other)
  Sender: FDA-Public Use
  Company Number: None

PATIENT
  Age: 58 Year
  Sex: Male
  Weight: 115.6672 kg

DRUGS (2)
  1. BUPROPRION XL [Suspect]
     Indication: DEPRESSION
     Dosage: 150 DAILY ORAL (3 YEARS AGO)
     Route: 048
  2. BUPROPRION SR [Suspect]
     Dosage: 150 DAILY

REACTIONS (2)
  - PALPITATIONS [None]
  - PRODUCT SUBSTITUTION ISSUE [None]
